FAERS Safety Report 7243361-0 (Version None)
Quarter: 2011Q1

REPORT INFORMATION
  Report Type: 
  Country: None (occurrence: None)
  Receive Date: 20110125
  Receipt Date: 20110114
  Transmission Date: 20110831
  Serious: Yes (Death, Hospitalization, Other)
  Sender: FDA-Public Use
  Company Number: DE-GENZYME-RENA-1001045

PATIENT
  Sex: Female
  Weight: 55 kg

DRUGS (10)
  1. RENAGEL [Suspect]
     Indication: HYPERPHOSPHATAEMIA
     Dosage: 0.8 G, TID
     Route: 048
     Dates: start: 20090708, end: 20091201
  2. DIURETICS [Concomitant]
     Indication: PRODUCT USED FOR UNKNOWN INDICATION
  3. BETA BLOCKING AGENTS [Concomitant]
     Indication: PRODUCT USED FOR UNKNOWN INDICATION
  4. COLECALCIFEROL [Concomitant]
     Indication: PRODUCT USED FOR UNKNOWN INDICATION
     Route: 065
  5. ACE INHIBITOR NOS [Concomitant]
     Indication: PRODUCT USED FOR UNKNOWN INDICATION
  6. ALFACALCIDOL [Concomitant]
     Indication: PRODUCT USED FOR UNKNOWN INDICATION
     Dosage: UNK
     Route: 042
  7. CALCIUM ANTAGONIST NOS [Concomitant]
     Indication: PRODUCT USED FOR UNKNOWN INDICATION
  8. EPOGEN [Concomitant]
     Indication: PRODUCT USED FOR UNKNOWN INDICATION
  9. RENAGEL [Suspect]
     Dosage: 4.8 G, QD
     Route: 048
     Dates: start: 20091201, end: 20100501
  10. IRON SUBSTITUION [Concomitant]

REACTIONS (5)
  - GANGRENE [None]
  - SMALL INTESTINE GANGRENE [None]
  - SEPTIC SHOCK [None]
  - PERIPHERAL ARTERIAL OCCLUSIVE DISEASE [None]
  - COELIAC ARTERY OCCLUSION [None]
